FAERS Safety Report 13155476 (Version 1)
Quarter: 2017Q1

REPORT INFORMATION
  Report Type: Spontaneous
  Country: US (occurrence: US)
  Receive Date: 20170126
  Receipt Date: 20170126
  Transmission Date: 20170428
  Serious: Yes (Death)
  Sender: FDA-Public Use
  Company Number: US-PFIZER INC-2017028955

PATIENT
  Age: 70 Year
  Sex: Female

DRUGS (4)
  1. ACETAMINOPHEN. [Suspect]
     Active Substance: ACETAMINOPHEN
     Dosage: UNK
  2. LEVOTHYROXINE SODIUM. [Suspect]
     Active Substance: LEVOTHYROXINE SODIUM
     Dosage: UNK
     Route: 048
  3. HYDROXYZINE PAMOATE. [Suspect]
     Active Substance: HYDROXYZINE PAMOATE
     Route: 048
  4. HYPOCHLORITE [Suspect]
     Active Substance: HYPOCHLORITE ION
     Dosage: UNK

REACTIONS (1)
  - Completed suicide [Fatal]

NARRATIVE: CASE EVENT DATE: 2015
